FAERS Safety Report 5286080-2 (Version None)
Quarter: 2007Q1

REPORT INFORMATION
  Report Type: 
  Country: None (occurrence: None)
  Receive Date: 20070329
  Receipt Date: 20070319
  Transmission Date: 20070707
  Serious: Yes (Death)
  Sender: FDA-Public Use
  Company Number: S06-USA-05038-01

PATIENT
  Age: 40 Year
  Sex: Male
  Weight: 95.2554 kg

DRUGS (10)
  1. LEXAPRO [Suspect]
     Indication: ANXIETY
     Dosage: 10 MG QD PO
     Route: 048
     Dates: start: 20031022, end: 20031026
  2. LEXAPRO [Suspect]
     Indication: DEPRESSION
     Dosage: 10 MG QD PO
     Route: 048
     Dates: start: 20031022, end: 20031026
  3. LEXAPRO [Suspect]
     Indication: STRESS
     Dosage: 10 MG QD PO
     Route: 048
     Dates: start: 20031022, end: 20031026
  4. XANAX [Concomitant]
  5. SERZONE [Concomitant]
  6. COZAAR [Concomitant]
  7. HUMULIN N [Concomitant]
  8. HUMALOG [Concomitant]
  9. KLONOPIN [Concomitant]
  10. AMBIEN [Concomitant]

REACTIONS (25)
  - ABNORMAL BEHAVIOUR [None]
  - AKATHISIA [None]
  - ANXIETY [None]
  - ARTHROPATHY [None]
  - ASTHENIA [None]
  - BLOOD CHLORIDE DECREASED [None]
  - BLOOD GLUCOSE INCREASED [None]
  - BLOOD KETONE BODY PRESENT [None]
  - BLOOD SODIUM DECREASED [None]
  - CARBON DIOXIDE DECREASED [None]
  - COLD SWEAT [None]
  - COMPLETED SUICIDE [None]
  - DRUG SCREEN POSITIVE [None]
  - FEAR [None]
  - HOT FLUSH [None]
  - HYPERHIDROSIS [None]
  - INJURY ASPHYXIATION [None]
  - MAJOR DEPRESSION [None]
  - PANIC ATTACK [None]
  - POOR QUALITY SLEEP [None]
  - REFUSAL OF TREATMENT BY PATIENT [None]
  - RESTLESSNESS [None]
  - SUICIDAL IDEATION [None]
  - TEARFULNESS [None]
  - TREMOR [None]
